FAERS Safety Report 6842416-X (Version None)
Quarter: 2010Q3

REPORT INFORMATION
  Report Type: 
  Country: None (occurrence: None)
  Receive Date: 20100714
  Receipt Date: 20070726
  Transmission Date: 20110219
  Serious: No
  Sender: FDA-Public Use
  Company Number: US-PFIZER INC-2007063593

PATIENT
  Sex: Female
  Weight: 45.454 kg

DRUGS (2)
  1. CHANTIX [Suspect]
     Indication: SMOKING CESSATION THERAPY
     Dates: start: 20070724, end: 20070725
  2. VITAMINS [Concomitant]

REACTIONS (12)
  - EPISTAXIS [None]
  - HEADACHE [None]
  - MUSCULAR WEAKNESS [None]
  - NASAL CONGESTION [None]
  - NERVOUSNESS [None]
  - RHINORRHOEA [None]
  - SLEEP DISORDER [None]
  - THROAT IRRITATION [None]
  - TONSILLAR DISORDER [None]
  - TONSILLAR HYPERTROPHY [None]
  - TREMOR [None]
  - UPPER-AIRWAY COUGH SYNDROME [None]
